FAERS Safety Report 22716855 (Version 3)
Quarter: 2025Q4

REPORT INFORMATION
  Report Type: Report from Study
  Country: US (occurrence: US)
  Receive Date: 20230718
  Receipt Date: 20251112
  Transmission Date: 20260117
  Serious: Yes (Other)
  Sender: JAZZ
  Company Number: US-JAZZ-2022-US-033024

PATIENT
  Age: 26 Year
  Sex: Female
  Weight: 98 kg

DRUGS (9)
  1. XYREM [Suspect]
     Active Substance: SODIUM OXYBATE
     Indication: Narcolepsy
     Dosage: 3.75 GRAM, BID
  2. XYREM [Suspect]
     Active Substance: SODIUM OXYBATE
     Indication: Cataplexy
  3. XYREM [Suspect]
     Active Substance: SODIUM OXYBATE
     Indication: Somnolence
  4. LORATADINE [Concomitant]
     Active Substance: LORATADINE
     Dosage: 0000
  5. WAKIX [Concomitant]
     Active Substance: PITOLISANT HYDROCHLORIDE
     Dosage: 0000
  6. METHOTREXATE [Concomitant]
     Active Substance: METHOTREXATE
     Dosage: 0000
  7. DEXAMETHASONE\OFLOXACIN [Concomitant]
     Active Substance: DEXAMETHASONE\OFLOXACIN
     Dosage: UNK, QD
  8. METHYLPHENIDATE [Concomitant]
     Active Substance: METHYLPHENIDATE
     Dosage: UNK
  9. DEXMETHYLPHENIDATE [Concomitant]
     Active Substance: DEXMETHYLPHENIDATE
     Dosage: UNK

REACTIONS (6)
  - Neuropathy peripheral [Unknown]
  - Psoriasis [Unknown]
  - Asthma [Unknown]
  - Dysarthria [Unknown]
  - Muscular weakness [Unknown]
  - Hypertension [Unknown]

NARRATIVE: CASE EVENT DATE: 20060101
